FAERS Safety Report 4889001-7 (Version None)
Quarter: 2005Q4

REPORT INFORMATION
  Report Type: 
  Country: None (occurrence: None)
  Receive Date: 20051215
  Receipt Date: 20050322
  Transmission Date: 20060501
  Serious: Yes (Other)
  Sender: FDA-Public Use
  Company Number: 2005048011

PATIENT
  Age: 56 Year
  Sex: Female

DRUGS (4)
  1. BEXTRA [Suspect]
     Indication: ARTHRITIS
     Dosage: UNK (10 MG, DAILY), ORAL
     Route: 048
     Dates: start: 20041001
  2. ESOMEPRAZOLE (ESOMEPRAZOLE) [Concomitant]
  3. PHRENILIN (BUTALBITAL, PARACETAMOL) [Concomitant]
  4. AMLODIPINE BESYLATE [Concomitant]

REACTIONS (6)
  - APHONIA [None]
  - DIFFICULTY IN WALKING [None]
  - DYSPHAGIA [None]
  - DYSPNOEA [None]
  - EATING DISORDER [None]
  - GASTROOESOPHAGEAL REFLUX DISEASE [None]
